FAERS Safety Report 21711669 (Version 2)
Quarter: 2023Q1

REPORT INFORMATION
  Report Type: Spontaneous
  Country: US (occurrence: None)
  Receive Date: 20221212
  Receipt Date: 20230203
  Transmission Date: 20230418
  Serious: Yes (Hospitalization, Other)
  Sender: FDA-Public Use
  Company Number: US-MLMSERVICE-20221125-3943414-1

PATIENT
  Age: 55 Year
  Sex: Male

DRUGS (1)
  1. CEFTAZIDIME [Suspect]
     Active Substance: CEFTAZIDIME
     Indication: Peritonitis bacterial
     Dosage: ()
     Route: 033

REACTIONS (2)
  - Mania [Recovered/Resolved]
  - Off label use [Unknown]
